FAERS Safety Report 9463904 (Version 2)
Quarter: 2014Q1

REPORT INFORMATION
  Report Type: Spontaneous
  Country: FR (occurrence: FR)
  Receive Date: 20130819
  Receipt Date: 20140306
  Transmission Date: 20141002
  Serious: Yes (Other)
  Sender: FDA-Public Use
  Company Number: FR-ROCHE-1261895

PATIENT
  Age: 13 Year
  Sex: Male

DRUGS (8)
  1. ROACTEMRA [Suspect]
     Indication: JUVENILE IDIOPATHIC ARTHRITIS
     Route: 042
     Dates: start: 200909
  2. ROACTEMRA [Suspect]
     Dosage: TOCILIZUMAB (ACTEMRA)
     Route: 065
     Dates: start: 200904
  3. APRANAX [Suspect]
     Indication: JUVENILE IDIOPATHIC ARTHRITIS
     Route: 065
     Dates: end: 20130313
  4. APRANAX [Suspect]
     Dosage: RESTARTED
     Route: 065
  5. CORTANCYL [Suspect]
     Indication: JUVENILE IDIOPATHIC ARTHRITIS
     Route: 065
  6. CONTRAMAL [Suspect]
     Indication: JUVENILE IDIOPATHIC ARTHRITIS
     Dosage: 10 TO 15 DROPS/DAY
     Route: 065
  7. INEXIUM [Suspect]
     Indication: JUVENILE IDIOPATHIC ARTHRITIS
     Route: 065
  8. PARACETAMOL [Suspect]
     Indication: JUVENILE IDIOPATHIC ARTHRITIS
     Route: 048

REACTIONS (2)
  - Rectal haemorrhage [Recovered/Resolved]
  - Gastrointestinal inflammation [Not Recovered/Not Resolved]
